FAERS Safety Report 4354525-8 (Version None)
Quarter: 2004Q2

REPORT INFORMATION
  Report Type: 
  Country: None (occurrence: None)
  Receive Date: 20040503
  Receipt Date: 20040423
  Transmission Date: 20050107
  Serious: Yes (Other)
  Sender: FDA-Public Use
  Company Number: 2004-04-1569

PATIENT
  Age: 32 Year
  Sex: Female

DRUGS (2)
  1. PEG INTERFERON INJECTABLE [Suspect]
     Indication: HEPATITIS C
     Dosage: 120 MCG SUBCUTANEOUS
     Route: 058
  2. RIBAVIRIN [Suspect]
     Indication: HEPATITIS C
     Dosage: 1000 MG QD ORAL
     Route: 048

REACTIONS (8)
  - BLINDNESS UNILATERAL [None]
  - CONGENITAL OPTIC NERVE ANOMALY [None]
  - IRON DEFICIENCY ANAEMIA [None]
  - OPTIC ATROPHY [None]
  - OPTIC DISC HAEMORRHAGE [None]
  - PAPILLOEDEMA [None]
  - PUPILLARY DISORDER [None]
  - RETINAL EXUDATES [None]
